FAERS Safety Report 5980084-X (Version None)
Quarter: 2008Q4

REPORT INFORMATION
  Report Type: 
  Country: None (occurrence: None)
  Receive Date: 20081205
  Receipt Date: 20081120
  Transmission Date: 20090506
  Serious: Yes (Hospitalization)
  Sender: FDA-Public Use
  Company Number: JP-AMGEN-US320653

PATIENT
  Age: 56 Year
  Sex: Female

DRUGS (3)
  1. ENBREL [Suspect]
     Indication: RHEUMATOID ARTHRITIS
     Dosage: UNKNOWN
  2. ENBREL [Suspect]
     Dosage: UNKNOWN
  3. METHOTREXATE [Concomitant]
     Dosage: UNKNOWN, BUT STARTED 14 MO AFTER ENBREL

REACTIONS (2)
  - NEISSERIA INFECTION [None]
  - PNEUMONIA BACTERIAL [None]
